FAERS Safety Report 6124443-3 (Version None)
Quarter: 2009Q1

REPORT INFORMATION
  Report Type: 
  Country: None (occurrence: None)
  Receive Date: 20090317
  Receipt Date: 20090317
  Transmission Date: 20090719
  Serious: Yes (Other)
  Sender: FDA-Public Use
  Company Number: None

PATIENT
  Age: 65 Year
  Sex: Female
  Weight: 70.3075 kg

DRUGS (1)
  1. SIMVASTATIN [Suspect]
     Indication: HYPERTENSION
     Dosage: ONE TABLET ONCE DAILY PO
     Route: 048
     Dates: start: 20070101, end: 20090101

REACTIONS (3)
  - ALOPECIA [None]
  - DYSPEPSIA [None]
  - MUSCLE SPASMS [None]
